FAERS Safety Report 7429566-4 (Version None)
Quarter: 2011Q2

REPORT INFORMATION
  Report Type: 
  Country: None (occurrence: None)
  Receive Date: 20110421
  Receipt Date: 20110413
  Transmission Date: 20111010
  Serious: Yes (Other)
  Sender: FDA-Public Use
  Company Number: A0922872A

PATIENT
  Age: 46 Year
  Sex: Female

DRUGS (3)
  1. IBUPROFEN [Concomitant]
  2. LYRICA [Concomitant]
  3. VALTREX [Suspect]
     Indication: GENITAL HERPES
     Dosage: 500MG PER DAY
     Route: 048
     Dates: start: 20100501

REACTIONS (1)
  - NEUROPATHY PERIPHERAL [None]
